FAERS Safety Report 6983096-2 (Version None)
Quarter: 2010Q3

REPORT INFORMATION
  Report Type: 
  Country: None (occurrence: None)
  Receive Date: 20100914
  Receipt Date: 20100716
  Transmission Date: 20110219
  Serious: Yes (Other)
  Sender: FDA-Public Use
  Company Number: US-PFIZER INC-2010034236

PATIENT
  Age: 80 Year
  Sex: Female
  Weight: 58.957 kg

DRUGS (3)
  1. LYRICA [Suspect]
     Indication: FACIAL NEURALGIA
     Dosage: 75 MG, 2X/DAY
     Dates: start: 20100312
  2. MEVACOR [Concomitant]
  3. AMBIEN [Concomitant]

REACTIONS (1)
  - VISION BLURRED [None]
